FAERS Safety Report 5952178-6 (Version None)
Quarter: 2008Q4

REPORT INFORMATION
  Report Type: 
  Country: None (occurrence: None)
  Receive Date: 20081113
  Receipt Date: 20080908
  Transmission Date: 20090506
  Serious: No
  Sender: FDA-Public Use
  Company Number: A0743080A

PATIENT
  Sex: Male

DRUGS (1)
  1. COREG [Suspect]
     Indication: HYPERTENSION
     Dosage: 6.25MG SINGLE DOSE
     Route: 048
     Dates: start: 20080704

REACTIONS (3)
  - AMNESIA [None]
  - BRADYCARDIA [None]
  - FATIGUE [None]
